FAERS Safety Report 21559679 (Version 1)
Quarter: 2022Q4

REPORT INFORMATION
  Report Type: Spontaneous
  Country: PL (occurrence: PL)
  Receive Date: 20221107
  Receipt Date: 20221107
  Transmission Date: 20230113
  Serious: Yes (Other)
  Sender: FDA-Public Use
  Company Number: PL-ViiV Healthcare Limited-PL2022EME156810

PATIENT

DRUGS (29)
  1. KIVEXA [Suspect]
     Active Substance: ABACAVIR SULFATE\LAMIVUDINE
     Indication: HIV infection
     Dosage: UNK (ONCE A DAY)
  2. LEVOFLOXACIN [Suspect]
     Active Substance: LEVOFLOXACIN
     Indication: Tuberculosis
     Dosage: 500 MG, BID
  3. COTRIMOXAZOLE [Suspect]
     Active Substance: SULFAMETHOXAZOLE\TRIMETHOPRIM
     Indication: Antifungal prophylaxis
     Dosage: 960 MG, Z (EVERY OTHER DAY)
  4. FLUCONAZOLE [Suspect]
     Active Substance: FLUCONAZOLE
     Indication: Candida infection
     Dosage: 100 MG, BID
     Route: 048
  5. PYRIMETHAMINE [Suspect]
     Active Substance: PYRIMETHAMINE
     Indication: Evidence based treatment
     Dosage: UNK
  6. PYRIMETHAMINE [Suspect]
     Active Substance: PYRIMETHAMINE
     Indication: Toxoplasmosis
  7. KALETRA [Suspect]
     Active Substance: LOPINAVIR\RITONAVIR
     Indication: HIV infection
     Dosage: 2 DF, BID
  8. ISENTRESS [Suspect]
     Active Substance: RALTEGRAVIR POTASSIUM
     Indication: HIV infection
     Dosage: 400 MG, BID
     Dates: start: 201112
  9. PREZISTA [Suspect]
     Active Substance: DARUNAVIR ETHANOLATE
     Indication: HIV infection
     Dosage: 600 MG, BID
  10. RITONAVIR [Suspect]
     Active Substance: RITONAVIR
     Indication: HIV infection
     Dosage: 100 MG, BID
  11. TRUVADA [Suspect]
     Active Substance: EMTRICITABINE\TENOFOVIR DISOPROXIL FUMARATE
     Indication: HIV infection
     Dosage: 1 DF, 1D
  12. EFAVIRENZ [Suspect]
     Active Substance: EFAVIRENZ
     Indication: HIV infection
     Dosage: 800 MG, 1D
  13. STREPTOMYCIN [Suspect]
     Active Substance: STREPTOMYCIN SULFATE
     Indication: Tuberculosis
     Dosage: 1 G, QD
     Route: 030
  14. CLINDAMYCIN [Suspect]
     Active Substance: CLINDAMYCIN
     Indication: Evidence based treatment
     Dosage: 600 MG, TID
  15. CLINDAMYCIN [Suspect]
     Active Substance: CLINDAMYCIN
     Indication: Toxoplasmosis
  16. CLOFAZIMINE [Suspect]
     Active Substance: CLOFAZIMINE
     Indication: Tuberculosis
     Dosage: 100 MG, BID
  17. ETHIONAMIDE [Suspect]
     Active Substance: ETHIONAMIDE
     Indication: Tuberculosis
     Dosage: 750 MG, BID
     Route: 048
  18. CLARITHROMYCIN [Suspect]
     Active Substance: CLARITHROMYCIN
     Indication: Tuberculosis
     Dosage: 500 MG, BID
  19. MEROPENEM [Suspect]
     Active Substance: MEROPENEM
     Indication: Urinary tract inflammation
     Dosage: 200 MG, QD
     Route: 042
  20. ERTAPENEM [Suspect]
     Active Substance: ERTAPENEM
     Indication: Urinary tract inflammation
     Dosage: 1000 MG, QD (MINIMUM SEVEN DAYS)
     Route: 042
  21. FOSFOMYCIN [Suspect]
     Active Substance: FOSFOMYCIN
     Indication: Urinary tract inflammation
     Dosage: UNK
  22. RIFAMPIN [Concomitant]
     Active Substance: RIFAMPIN
     Indication: Tuberculosis
     Dosage: UNK
     Dates: start: 201104
  23. ETHAMBUTOL [Concomitant]
     Active Substance: ETHAMBUTOL HYDROCHLORIDE
     Indication: Tuberculosis
     Dosage: UNK
     Dates: start: 201104
  24. ISONIAZID [Concomitant]
     Active Substance: ISONIAZID
     Indication: Tuberculosis
     Dosage: UNK
     Dates: start: 201104
  25. PYRAZINAMIDE [Concomitant]
     Active Substance: PYRAZINAMIDE
     Indication: Tuberculosis
     Dosage: UNK
     Dates: start: 201104
  26. ALBUMIN TRANSFUSION [Concomitant]
     Indication: Product used for unknown indication
     Dosage: UNK
  27. VORICONAZOLE [Concomitant]
     Active Substance: VORICONAZOLE
     Indication: Candida infection
     Dosage: UNK
  28. GANCICLOVIR [Concomitant]
     Active Substance: GANCICLOVIR
     Indication: Cytomegalovirus chorioretinitis
     Dosage: UNK
  29. OSELTAMIVIR [Concomitant]
     Active Substance: OSELTAMIVIR
     Indication: H1N1 influenza
     Dosage: UNK

REACTIONS (11)
  - Neuropsychiatric symptoms [Unknown]
  - Diarrhoea [Unknown]
  - Nausea [Unknown]
  - Myalgia [Unknown]
  - Hepatitis cholestatic [Unknown]
  - Pancreatitis [Unknown]
  - Clostridium difficile colitis [Unknown]
  - Urinary tract inflammation [Unknown]
  - Pathogen resistance [Unknown]
  - Neutropenia [Unknown]
  - Drug resistance [Unknown]
